FAERS Safety Report 6930604-3 (Version None)
Quarter: 2010Q3

REPORT INFORMATION
  Report Type: 
  Country: None (occurrence: None)
  Receive Date: 20100818
  Receipt Date: 20100811
  Transmission Date: 20110219
  Serious: Yes (Other)
  Sender: FDA-Public Use
  Company Number: JP-MERCK-1008USA01753

PATIENT

DRUGS (3)
  1. PEPCID [Suspect]
     Route: 065
  2. FLUMARIN [Concomitant]
     Route: 065
  3. DALACIN S [Concomitant]
     Route: 065

REACTIONS (1)
  - OCULOMUCOCUTANEOUS SYNDROME [None]
